FAERS Safety Report 4537082-2 (Version None)
Quarter: 2004Q4

REPORT INFORMATION
  Report Type: 
  Country: None (occurrence: None)
  Receive Date: 20041223
  Receipt Date: 20040915
  Transmission Date: 20050328
  Serious: Yes (Disabling)
  Sender: FDA-Public Use
  Company Number: BE-GLAXOSMITHKLINE-B0345805A

PATIENT
  Age: 60 Year
  Sex: Female
  Weight: 76 kg

DRUGS (5)
  1. AVANDIA [Suspect]
     Dosage: 4MG PER DAY
     Route: 048
     Dates: start: 20040319, end: 20040925
  2. LIPITOR [Concomitant]
     Dosage: 20MG PER DAY
     Route: 048
     Dates: start: 20030825
  3. EMCORETIC [Concomitant]
     Indication: BLOOD PRESSURE
     Route: 048
     Dates: start: 20020117
  4. DIAMICRON [Concomitant]
     Dosage: 30MG PER DAY
     Route: 048
     Dates: start: 20040713
  5. IBUPROFEN [Concomitant]
     Indication: ARTHRALGIA
     Dosage: 400MG PER DAY
     Route: 048
     Dates: start: 20040713

REACTIONS (1)
  - ABDOMINAL PAIN [None]
